FAERS Safety Report 5336627-2 (Version None)
Quarter: 2007Q2

REPORT INFORMATION
  Report Type: 
  Country: None (occurrence: None)
  Receive Date: 20070529
  Receipt Date: 20070517
  Transmission Date: 20071010
  Serious: Yes (Other)
  Sender: FDA-Public Use
  Company Number: BR-JNJFOC-20070402946

PATIENT
  Age: 16 Year
  Sex: Female

DRUGS (2)
  1. CONCERTA [Suspect]
     Route: 048
  2. CONCERTA [Suspect]
     Indication: ATTENTION DEFICIT/HYPERACTIVITY DISORDER
     Route: 048

REACTIONS (8)
  - ARRHYTHMIA [None]
  - CHEST PAIN [None]
  - DYSPNOEA [None]
  - EXTRASYSTOLES [None]
  - FATIGUE [None]
  - MEDICATION TAMPERING [None]
  - MUSCULAR WEAKNESS [None]
  - TACHYCARDIA [None]
